FAERS Safety Report 11042486 (Version 2)
Quarter: 2015Q2

REPORT INFORMATION
  Report Type: Spontaneous
  Country: US (occurrence: US)
  Receive Date: 20150416
  Receipt Date: 20150525
  Transmission Date: 20150821
  Serious: No
  Sender: FDA-Public Use
  Company Number: US-JNJFOC-20141101836

PATIENT
  Age: 50 Year
  Sex: Male
  Weight: 187 kg

DRUGS (4)
  1. RIVAROXABAN [Suspect]
     Active Substance: RIVAROXABAN
     Indication: MESENTERIC VEIN THROMBOSIS
     Route: 048
  2. RIVAROXABAN [Suspect]
     Active Substance: RIVAROXABAN
     Indication: PORTAL VEIN THROMBOSIS
     Route: 048
  3. UNFRACTIONATED HEPARIN [Concomitant]
     Active Substance: HEPARIN SODIUM
     Indication: MESENTERIC VEIN THROMBOSIS
     Route: 042
  4. UNFRACTIONATED HEPARIN [Concomitant]
     Active Substance: HEPARIN SODIUM
     Indication: PORTAL VEIN THROMBOSIS
     Route: 042

REACTIONS (1)
  - Product use issue [Unknown]
